FAERS Safety Report 6011547-9 (Version None)
Quarter: 2008Q4

REPORT INFORMATION
  Report Type: 
  Country: None (occurrence: None)
  Receive Date: 20081218
  Receipt Date: 20080909
  Transmission Date: 20090506
  Serious: Yes (Other)
  Sender: FDA-Public Use
  Company Number: US-ASTRAZENECA-2008UW18577

PATIENT
  Age: 84 Year
  Sex: Female
  Weight: 67.1 kg

DRUGS (8)
  1. CRESTOR [Suspect]
     Indication: PROPHYLAXIS
     Route: 048
     Dates: start: 20080827
  2. COUMADIN [Interacting]
  3. ASPIRIN [Concomitant]
  4. NEXIUM [Concomitant]
     Route: 048
  5. COREG [Concomitant]
  6. FUROSEMIDE [Concomitant]
  7. SYNTHROID [Concomitant]
  8. MICARDIS [Concomitant]

REACTIONS (2)
  - DRUG INTERACTION [None]
  - INTERNATIONAL NORMALISED RATIO INCREASED [None]
